FAERS Safety Report 7957306-9 (Version None)
Quarter: 2011Q4

REPORT INFORMATION
  Report Type: 
  Country: None (occurrence: None)
  Receive Date: 20111205
  Receipt Date: 20111020
  Transmission Date: 20120403
  Serious: No
  Sender: FDA-Public Use
  Company Number: US-BAYER-2011-102402

PATIENT

DRUGS (2)
  1. ANALGESICS [Concomitant]
  2. ALEVE (CAPLET) [Suspect]
     Indication: GINGIVAL PAIN

REACTIONS (1)
  - GINGIVAL PAIN [None]
